FAERS Safety Report 18215283 (Version 1)
Quarter: 2020Q3

REPORT INFORMATION
  Report Type: Spontaneous
  Country: US (occurrence: US)
  Receive Date: 20200831
  Receipt Date: 20200831
  Transmission Date: 20201103
  Serious: Yes (Hospitalization, Other)
  Sender: FDA-Public Use
  Company Number: US-PURDUE-USA-2020-0163912

PATIENT
  Age: 59 Year
  Sex: Female

DRUGS (8)
  1. OXYCONTIN [Suspect]
     Active Substance: OXYCODONE HYDROCHLORIDE
     Indication: CHEST PAIN
     Dosage: UNK
     Route: 048
  2. OXYCODONE HCL TABLETS (RHODES 91?490) [Suspect]
     Active Substance: OXYCODONE HYDROCHLORIDE
     Indication: CHEST PAIN
     Dosage: UNK
     Route: 048
  3. MS CONTIN [Suspect]
     Active Substance: MORPHINE SULFATE
     Indication: CHEST PAIN
     Dosage: UNK
     Route: 048
  4. TRAMADOL. [Suspect]
     Active Substance: TRAMADOL
     Indication: CHEST PAIN
     Dosage: UNK
     Route: 048
  5. HYDROCODONE BITARTRATE AND ACETAMINOPHEN [Suspect]
     Active Substance: ACETAMINOPHEN\HYDROCODONE BITARTRATE
     Indication: CHEST PAIN
     Dosage: UNK
     Route: 048
  6. DILAUDID [Suspect]
     Active Substance: HYDROMORPHONE HYDROCHLORIDE
     Indication: CHEST PAIN
     Dosage: UNK
     Route: 048
  7. MORPHINE SULFATE EXTENDED?RELEASE TABLETS (RHODES 74?769, 74?862) [Suspect]
     Active Substance: MORPHINE SULFATE
     Indication: CHEST PAIN
     Dosage: UNK
     Route: 048
  8. OXYCODONE/ ACETAMINOPHEN TABLETS [Suspect]
     Active Substance: ACETAMINOPHEN\OXYCODONE HYDROCHLORIDE
     Indication: CHEST PAIN
     Dosage: UNK
     Route: 048

REACTIONS (15)
  - Pectus excavatum [Unknown]
  - Feeling of despair [Unknown]
  - Tinnitus [Unknown]
  - Hyperacusis [Unknown]
  - Nausea [Unknown]
  - Emotional distress [Unknown]
  - Suicidal ideation [Unknown]
  - Deafness neurosensory [Unknown]
  - Muscle disorder [Unknown]
  - Depressed mood [Unknown]
  - Postoperative thoracic procedure complication [Unknown]
  - Lower respiratory tract infection [Unknown]
  - Emotional disorder [Unknown]
  - Frustration tolerance decreased [Unknown]
  - Muscle tightness [Unknown]

NARRATIVE: CASE EVENT DATE: 20180131
